FAERS Safety Report 6607643-5 (Version None)
Quarter: 2010Q1

REPORT INFORMATION
  Report Type: 
  Country: None (occurrence: None)
  Receive Date: 20100212
  Receipt Date: 20100201
  Transmission Date: 20100710
  Serious: Yes (Hospitalization, Other)
  Sender: FDA-Public Use
  Company Number: AECAN200900322

PATIENT
  Age: 77 Year
  Sex: Male
  Weight: 70.37 kg

DRUGS (7)
  1. IGIVNEX [Suspect]
     Indication: CHRONIC INFLAMMATORY DEMYELINATING POLYRADICULONEUROPATHY
     Dosage: 70 GM; TOTAL; IV, 100 GM; TOTAL; IV
     Route: 042
     Dates: start: 20090824, end: 20090825
  2. IGIVNEX [Suspect]
     Indication: CHRONIC INFLAMMATORY DEMYELINATING POLYRADICULONEUROPATHY
     Dosage: 70 GM; TOTAL; IV, 100 GM; TOTAL; IV
     Route: 042
     Dates: start: 20091102, end: 20091102
  3. IGIVNEX [Suspect]
  4. IGIVNEX [Suspect]
  5. GAMUNEX [Suspect]
     Indication: CHRONIC INFLAMMATORY DEMYELINATING POLYRADICULONEUROPATHY
     Dosage: 70 GM; QD; IV, 10 GM; QD; IV
     Route: 042
     Dates: start: 20090824, end: 20090825
  6. GAMUNEX [Suspect]
     Indication: CHRONIC INFLAMMATORY DEMYELINATING POLYRADICULONEUROPATHY
     Dosage: 70 GM; QD; IV, 10 GM; QD; IV
     Route: 042
     Dates: start: 20091005, end: 20091006
  7. GAMUNEX [Suspect]

REACTIONS (9)
  - ANAEMIA HAEMOLYTIC AUTOIMMUNE [None]
  - BLOOD BILIRUBIN DECREASED [None]
  - BLOOD LACTATE DEHYDROGENASE INCREASED [None]
  - BLOOD PRESSURE SYSTOLIC INCREASED [None]
  - DYSPNOEA PAROXYSMAL NOCTURNAL [None]
  - HAEMOGLOBINURIA [None]
  - HEART RATE DECREASED [None]
  - PLATELET COUNT DECREASED [None]
  - WHITE BLOOD CELL COUNT DECREASED [None]
